FAERS Safety Report 12709369 (Version 1)
Quarter: 2016Q3

REPORT INFORMATION
  Report Type: Report from Study
  Country: US (occurrence: US)
  Receive Date: 20160901
  Receipt Date: 20160901
  Transmission Date: 20161109
  Serious: Yes (Other)
  Sender: FDA-Public Use
  Company Number: US-AMGEN-USASL2016112720

PATIENT
  Age: 28 Year
  Sex: Female

DRUGS (1)
  1. ENBREL [Suspect]
     Active Substance: ETANERCEPT
     Indication: RHEUMATOID ARTHRITIS
     Dosage: UNK, QWK
     Route: 065

REACTIONS (15)
  - Migraine [Not Recovered/Not Resolved]
  - Injection site warmth [Unknown]
  - Injection site pain [Unknown]
  - Injection site erythema [Unknown]
  - Muscle twitching [Unknown]
  - Injection site bruising [Unknown]
  - Drug dose omission [Unknown]
  - Loss of consciousness [Unknown]
  - Heart rate abnormal [Unknown]
  - Erythema [Unknown]
  - Injection site rash [Unknown]
  - Feeling hot [Unknown]
  - Injection site reaction [Unknown]
  - Injection site swelling [Unknown]
  - Arthropathy [Unknown]

NARRATIVE: CASE EVENT DATE: 2016
